FAERS Safety Report 17247447 (Version 1)
Quarter: 2020Q1

REPORT INFORMATION
  Report Type: Spontaneous
  Country: CN (occurrence: CN)
  Receive Date: 20200108
  Receipt Date: 20200108
  Transmission Date: 20200409
  Serious: Yes (Other)
  Sender: FDA-Public Use
  Company Number: CN-ELI_LILLY_AND_COMPANY-CN202001000825

PATIENT
  Age: 80 Year
  Sex: Male

DRUGS (2)
  1. ZYVOX [Interacting]
     Active Substance: LINEZOLID
     Indication: INFECTION
     Dosage: 1200 MG, DAILY
     Route: 041
     Dates: start: 20191207, end: 20191212
  2. ZYPREXA [Suspect]
     Active Substance: OLANZAPINE
     Indication: DELIRIUM
     Dosage: UNK, UNKNOWN
     Route: 048
     Dates: start: 20191209, end: 20191211

REACTIONS (2)
  - Rhabdomyolysis [Unknown]
  - Drug interaction [Unknown]

NARRATIVE: CASE EVENT DATE: 20191212
